FAERS Safety Report 6549175-9 (Version None)
Quarter: 2010Q1

REPORT INFORMATION
  Report Type: 
  Country: None (occurrence: None)
  Receive Date: 20100125
  Receipt Date: 20100119
  Transmission Date: 20100710
  Serious: Yes (Death)
  Sender: FDA-Public Use
  Company Number: AT-ELI_LILLY_AND_COMPANY-AT201001004347

PATIENT
  Sex: Female

DRUGS (2)
  1. GEMZAR [Suspect]
     Indication: BREAST CANCER METASTATIC
     Dosage: 1000 MG/M2, OTHER (ON DAYS ONE AND EIGHT IN 21 DAY CYCLE)
     Route: 065
  2. DOCETAXEL [Concomitant]
     Indication: BREAST CANCER METASTATIC
     Dosage: 75 MG/M2, OTHER (ON DAY 8 IN 21 DAY CYCLE)
     Route: 065

REACTIONS (1)
  - ENTEROCOLITIS [None]
